FAERS Safety Report 5397877-2 (Version None)
Quarter: 2007Q3

REPORT INFORMATION
  Report Type: 
  Country: None (occurrence: None)
  Receive Date: 20070723
  Receipt Date: 20070723
  Transmission Date: 20080115
  Serious: Yes (Hospitalization)
  Sender: FDA-Public Use
  Company Number: None

PATIENT
  Sex: Male
  Weight: 38 kg

DRUGS (1)
  1. DOXYCYCLINE [Suspect]
     Indication: ORCHITIS
     Dosage: PO
     Route: 048
     Dates: start: 20070517, end: 20070522

REACTIONS (3)
  - ABASIA [None]
  - HEADACHE [None]
  - HYPOAESTHESIA [None]
